FAERS Safety Report 9031299 (Version 1)
Quarter: 2013Q1

REPORT INFORMATION
  Report Type: Spontaneous
  Country: JP (occurrence: JP)
  Receive Date: 20130124
  Receipt Date: 20130124
  Transmission Date: 20140127
  Serious: Yes (Other)
  Sender: FDA-Public Use
  Company Number: JP-B.I. PHARMACEUTICALS,INC./RIDGEFIELD-2013-BI-01754YA

PATIENT
  Age: 63 Year
  Sex: Male

DRUGS (3)
  1. HARNAL (TAMSULOSIN) ORODISPERSABLE CR [Suspect]
     Route: 048
  2. SEROQUEL [Suspect]
     Route: 048
  3. RISPERDAL (RISPERIDONE) [Concomitant]

REACTIONS (1)
  - Pleurodesis [Unknown]
